FAERS Safety Report 7191846-8 (Version None)
Quarter: 2010Q4

REPORT INFORMATION
  Report Type: 
  Country: None (occurrence: None)
  Receive Date: 20101223
  Receipt Date: 20101201
  Transmission Date: 20110411
  Serious: No
  Sender: FDA-Public Use
  Company Number: US-BAYER-2010-005402

PATIENT
  Sex: Male

DRUGS (1)
  1. EOVIST [Suspect]
     Dosage: 10 ML,
     Dates: start: 20101201, end: 20101201

REACTIONS (1)
  - URTICARIA [None]
